FAERS Safety Report 23159732 (Version 1)
Quarter: 2023Q4

REPORT INFORMATION
  Report Type: Spontaneous
  Country: US (occurrence: US)
  Receive Date: 20231108
  Receipt Date: 20231108
  Transmission Date: 20240110
  Serious: Yes (Other)
  Sender: FDA-Public Use
  Company Number: US-ORGANON-O2308USA001657

PATIENT
  Age: 37 Year
  Sex: Female
  Weight: 87.982 kg

DRUGS (2)
  1. NEXPLANON [Suspect]
     Active Substance: ETONOGESTREL
     Indication: Contraception
     Dosage: 1 IMPLANT IN RIGHT UPPER ARM
     Route: 059
     Dates: start: 20230814, end: 20230814
  2. NEXPLANON [Concomitant]
     Active Substance: ETONOGESTREL
     Indication: Contraception
     Dosage: 1 IMPLANT
     Route: 059
     Dates: start: 20200815, end: 20230814

REACTIONS (4)
  - Device expulsion [Recovered/Resolved]
  - Complication of device insertion [Recovered/Resolved]
  - Device placement issue [Recovered/Resolved]
  - Product quality issue [Unknown]

NARRATIVE: CASE EVENT DATE: 20230814
